FAERS Safety Report 15685114 (Version 2)
Quarter: 2018Q4

REPORT INFORMATION
  Report Type: Report from Study
  Country: None (occurrence: US)
  Receive Date: 20181204
  Receipt Date: 20181212
  Transmission Date: 20190205
  Serious: Yes (Hospitalization, Other)
  Sender: FDA-Public Use
  Company Number: US-ABBVIE-18K-163-2578179-00

PATIENT
  Age: 54 Year
  Sex: Female
  Weight: 58.11 kg

DRUGS (4)
  1. HUMIRA [Suspect]
     Active Substance: ADALIMUMAB
     Indication: CROHN^S DISEASE
     Route: 058
     Dates: start: 2017, end: 201712
  2. APRISO [Concomitant]
     Active Substance: MESALAMINE
     Indication: CROHN^S DISEASE
  3. HUMIRA [Suspect]
     Active Substance: ADALIMUMAB
     Route: 058
     Dates: start: 20180807, end: 20180807
  4. HUMIRA [Suspect]
     Active Substance: ADALIMUMAB
     Route: 058
     Dates: start: 20180814

REACTIONS (9)
  - Joint swelling [Recovered/Resolved]
  - Asthenia [Recovering/Resolving]
  - Intestinal ischaemia [Recovered/Resolved]
  - Alopecia [Recovering/Resolving]
  - Gastrointestinal inflammation [Recovered/Resolved]
  - Crohn^s disease [Recovering/Resolving]
  - Vomiting [Recovered/Resolved]
  - Intestinal obstruction [Recovering/Resolving]
  - Intestinal stenosis [Recovered/Resolved]

NARRATIVE: CASE EVENT DATE: 201804
